FAERS Safety Report 22594390 (Version 1)
Quarter: 2023Q2

REPORT INFORMATION
  Report Type: Spontaneous
  Country: US (occurrence: None)
  Receive Date: 20230612
  Receipt Date: 20230612
  Transmission Date: 20230721
  Serious: Yes (Other)
  Sender: FDA-Public Use
  Company Number: None

PATIENT
  Age: 62 Year
  Sex: Female
  Weight: 69.75 kg

DRUGS (2)
  1. TIOCONAZOLE 1 [Suspect]
     Active Substance: TIOCONAZOLE
     Indication: Fungal infection
     Dosage: OTHER QUANTITY : 300 OUNCE(S);?OTHER FREQUENCY : 1 TREATMENT;?
     Route: 067
     Dates: start: 20230611, end: 20230612
  2. LEVOTHYROXINE [Concomitant]
     Active Substance: LEVOTHYROXINE

REACTIONS (3)
  - Vulvovaginal swelling [None]
  - Vulvovaginal discomfort [None]
  - Vulvovaginal erythema [None]

NARRATIVE: CASE EVENT DATE: 20230611
